FAERS Safety Report 8137734-1 (Version None)
Quarter: 2012Q1

REPORT INFORMATION
  Report Type: 
  Country: None (occurrence: None)
  Receive Date: 20120215
  Receipt Date: 20120213
  Transmission Date: 20120608
  Serious: No
  Sender: FDA-Public Use
  Company Number: US-PFIZER INC-2011308329

PATIENT
  Sex: Female
  Weight: 62.132 kg

DRUGS (2)
  1. LYRICA [Suspect]
     Indication: SCIATICA
     Dosage: 75 MG, DAILY
     Route: 048
     Dates: start: 20111109, end: 20111116
  2. MAGNESIUM HYDROXIDE TAB [Concomitant]
     Indication: GASTROOESOPHAGEAL REFLUX DISEASE
     Dosage: UNK, AS NEEDED

REACTIONS (8)
  - DRUG INEFFECTIVE [None]
  - HEAD DISCOMFORT [None]
  - DISORIENTATION [None]
  - CONSTIPATION [None]
  - EAR DISCOMFORT [None]
  - CONFUSIONAL STATE [None]
  - DIZZINESS [None]
  - FEELING ABNORMAL [None]
